FAERS Safety Report 5786441-9 (Version None)
Quarter: 2008Q2

REPORT INFORMATION
  Report Type: 
  Country: None (occurrence: None)
  Receive Date: 20080624
  Receipt Date: 20080616
  Transmission Date: 20081010
  Serious: Yes (Hospitalization, Disabling, Other)
  Sender: FDA-Public Use
  Company Number: FR-PFIZER INC-2008005667

PATIENT
  Sex: Female
  Weight: 72 kg

DRUGS (7)
  1. SU-011,248 [Suspect]
     Indication: BREAST CANCER
     Route: 048
     Dates: start: 20071120, end: 20071208
  2. SU-011,248 [Suspect]
     Route: 048
     Dates: start: 20071214, end: 20080103
  3. CAPECITABINE [Suspect]
     Indication: BREAST CANCER
     Route: 048
  4. FUROSEMIDE [Concomitant]
     Route: 048
  5. PANTOPRAZOLE SODIUM [Concomitant]
     Route: 048
  6. ALPRAZOLAM [Concomitant]
     Route: 048
  7. ACETAMINOPHEN [Concomitant]
     Route: 048

REACTIONS (3)
  - HYPOTHYROIDISM [None]
  - MUSCULAR WEAKNESS [None]
  - MYALGIA [None]
